FAERS Safety Report 4889926-2 (Version None)
Quarter: 2006Q1

REPORT INFORMATION
  Report Type: 
  Country: None (occurrence: None)
  Receive Date: 20060124
  Receipt Date: 20050809
  Transmission Date: 20060701
  Serious: Yes (Death, Life-Threatening, Hospitalization)
  Sender: FDA-Public Use
  Company Number: PHHO2005DE12530

PATIENT
  Age: 42 Year
  Sex: Female

DRUGS (23)
  1. MAGNESIUM [Concomitant]
     Dates: start: 20050527, end: 20050717
  2. SALBUTAMOL [Concomitant]
     Dates: start: 20050527
  3. VORICONAZOLE [Concomitant]
     Dates: start: 20050605, end: 20050712
  4. ACC [Concomitant]
  5. NEORAL [Suspect]
     Indication: LUNG TRANSPLANT
     Route: 048
     Dates: start: 20050527
  6. HYDROCORTISONE [Suspect]
     Dosage: 100 MG, UNK
     Route: 042
     Dates: start: 20050723
  7. DACLIZUMAB [Suspect]
     Indication: LUNG TRANSPLANT
     Dosage: UNK, UNK
     Route: 042
     Dates: start: 20050526, end: 20050630
  8. MYCOPHENOLATE MOFETIL [Suspect]
     Indication: LUNG TRANSPLANT
     Dosage: 1000 MG, BID
     Route: 048
     Dates: start: 20050527, end: 20050713
  9. PREDNISOLONE [Suspect]
     Indication: LUNG TRANSPLANT
     Dosage: 25 MG, QD
     Route: 048
     Dates: start: 20050702
  10. PREDNISOLONE [Suspect]
     Dosage: 10 MG, QD
     Route: 048
     Dates: start: 20050528
  11. PREDNISOLONE [Suspect]
     Dosage: 25 MG, QD
     Route: 042
     Dates: start: 20050528, end: 20050723
  12. PIPERACILLIN [Suspect]
     Indication: PNEUMONIA
     Dosage: 2 G, TID
     Dates: start: 20050712, end: 20050721
  13. SULBACTAM [Suspect]
     Indication: PNEUMONIA
     Dosage: 0.5 G, TID
     Dates: start: 20050712, end: 20050721
  14. CIDOFOVIR [Concomitant]
     Dates: start: 20050715
  15. COTRIM [Concomitant]
     Dates: start: 20050531
  16. ACYCLOVIR [Concomitant]
     Dates: start: 20050630, end: 20050715
  17. ITRACONAZOLE [Concomitant]
     Dates: start: 20050427, end: 20050715
  18. RANITIDINE HCL [Concomitant]
     Dates: start: 20050527, end: 20050715
  19. CALCIUM GLUCONATE [Concomitant]
     Dates: start: 20050527, end: 20050717
  20. EISEN-II-SULFAT [Concomitant]
     Dates: start: 20050622, end: 20050717
  21. AMPHO-MORONAL [Concomitant]
     Dates: start: 20050527
  22. CASPOFUNGIN [Concomitant]
  23. VIGANTOLETTEN ^BAYER^ [Concomitant]

REACTIONS (15)
  - BACTERIA STOOL IDENTIFIED [None]
  - CHILLS [None]
  - CLOSTRIDIAL INFECTION [None]
  - CLOSTRIDIUM COLITIS [None]
  - COMA [None]
  - COUGH [None]
  - DYSPNOEA [None]
  - PERITONITIS [None]
  - PNEUMONIA [None]
  - PYREXIA [None]
  - RESPIRATORY FAILURE [None]
  - SEPSIS [None]
  - TACHYPNOEA [None]
  - TRACHEOSTOMY [None]
  - TRANSPLANT FAILURE [None]
